FAERS Safety Report 20483665 (Version 2)
Quarter: 2022Q2

REPORT INFORMATION
  Report Type: Spontaneous
  Country: US (occurrence: US)
  Receive Date: 20220217
  Receipt Date: 20220430
  Transmission Date: 20220721
  Serious: No
  Sender: FDA-Public Use
  Company Number: US-TEVA-2022-US-2003133

PATIENT
  Age: 53 Year
  Sex: Female

DRUGS (2)
  1. AJOVY [Suspect]
     Active Substance: FREMANEZUMAB-VFRM
     Dosage: 225 MG / 1.5 ML
     Route: 042
     Dates: start: 20201031
  2. MAXALT [Concomitant]
     Active Substance: RIZATRIPTAN BENZOATE
     Route: 065

REACTIONS (5)
  - Incorrect dose administered by device [Unknown]
  - Device issue [Unknown]
  - Injection site pain [Unknown]
  - Device malfunction [Unknown]
  - Needle issue [Unknown]
